FAERS Safety Report 20882988 (Version 3)
Quarter: 2022Q2

REPORT INFORMATION
  Report Type: Spontaneous
  Country: US (occurrence: US)
  Receive Date: 20220527
  Receipt Date: 20220614
  Transmission Date: 20220721
  Serious: No
  Sender: FDA-Public Use
  Company Number: US-GLAXOSMITHKLINE-US2022AMR083990

PATIENT
  Sex: Female

DRUGS (1)
  1. NUCALA [Suspect]
     Active Substance: MEPOLIZUMAB
     Indication: Asthma
     Dosage: UNK, 100MG/ML 1X1ML
     Dates: start: 202106

REACTIONS (5)
  - Exposure via skin contact [Recovered/Resolved]
  - Injection site pain [Unknown]
  - Device use error [Unknown]
  - Incorrect dose administered [Unknown]
  - Product complaint [Unknown]
